FAERS Safety Report 8662649 (Version 2)
Quarter: 2020Q2

REPORT INFORMATION
  Report Type: Spontaneous
  Country: US (occurrence: US)
  Receive Date: 20120712
  Receipt Date: 20200610
  Transmission Date: 20200714
  Serious: Yes (Other)
  Sender: FDA-Public Use
  Company Number: US-INCYTE CORPORATION-2012IN000545

PATIENT

DRUGS (5)
  1. JAKAFI [Suspect]
     Active Substance: RUXOLITINIB
     Dosage: 5 MILLIGRAM, QD
     Route: 048
  2. JAKAFI [Suspect]
     Active Substance: RUXOLITINIB
     Dosage: 10 MG, BID
     Route: 048
     Dates: start: 20120516, end: 2012
  3. JAKAFI [Suspect]
     Active Substance: RUXOLITINIB
     Indication: MYELOFIBROSIS
     Dosage: 20 MG, BID
     Route: 048
     Dates: start: 20120304, end: 20120406
  4. JAKAFI [Suspect]
     Active Substance: RUXOLITINIB
     Dosage: 10 MG, BID
     Route: 048
     Dates: start: 20120420, end: 20120514
  5. ENBREL [Concomitant]
     Active Substance: ETANERCEPT
     Indication: RHEUMATOID ARTHRITIS
     Route: 065

REACTIONS (13)
  - Nausea [Unknown]
  - Pyrexia [Unknown]
  - Back pain [Unknown]
  - Haemoglobin decreased [Unknown]
  - Thirst [Unknown]
  - Abdominal pain upper [Unknown]
  - Wrong technique in product usage process [Unknown]
  - Blood count abnormal [Not Recovered/Not Resolved]
  - Hyperbilirubinaemia [Unknown]
  - Splenomegaly [Unknown]
  - Leukopenia [Unknown]
  - Treatment noncompliance [Unknown]
  - Dizziness [Unknown]

NARRATIVE: CASE EVENT DATE: 2012
